FAERS Safety Report 9419365 (Version 1)
Quarter: 2013Q3

REPORT INFORMATION
  Report Type: Spontaneous
  Country: US (occurrence: US)
  Receive Date: 20130725
  Receipt Date: 20130725
  Transmission Date: 20140515
  Serious: No
  Sender: FDA-Public Use
  Company Number: US-GLAXOSMITHKLINE-A1023703A

PATIENT
  Sex: Female

DRUGS (5)
  1. LAMICTAL XR [Suspect]
     Indication: CONVULSION
     Dosage: 100MG TWICE PER DAY
     Route: 048
     Dates: start: 2004
  2. BISOPROLOL [Concomitant]
  3. HCTZ [Concomitant]
  4. CITALOPRAM [Concomitant]
  5. SIMVASTATIN [Concomitant]

REACTIONS (3)
  - Somnolence [Recovered/Resolved]
  - Somnolence [Unknown]
  - Listless [Unknown]
